FAERS Safety Report 25989378 (Version 1)
Quarter: 2025Q4

REPORT INFORMATION
  Report Type: Spontaneous
  Country: US (occurrence: US)
  Receive Date: 20251103
  Receipt Date: 20251103
  Transmission Date: 20260117
  Serious: No
  Sender: ABBVIE
  Company Number: US-ABBVIE-6527449

PATIENT
  Sex: Female

DRUGS (1)
  1. LINZESS [Suspect]
     Active Substance: LINACLOTIDE
     Indication: Constipation
     Dosage: FORM STRENGTH: 145 MILLIGRAM
     Route: 048

REACTIONS (5)
  - Poor quality product administered [Unknown]
  - Product dose omission issue [Not Recovered/Not Resolved]
  - Frequent bowel movements [Unknown]
  - Hypoacusis [Unknown]
  - Expired product administered [Unknown]
